FAERS Safety Report 11915539 (Version 1)
Quarter: 2016Q1

REPORT INFORMATION
  Report Type: Spontaneous
  Country: US (occurrence: None)
  Receive Date: 20160113
  Receipt Date: 20160113
  Transmission Date: 20160526
  Serious: Yes (Other)
  Sender: FDA-Public Use
  Company Number: None

PATIENT
  Age: 60 Year
  Sex: Male
  Weight: 156.49 kg

DRUGS (5)
  1. TRULICITY [Suspect]
     Active Substance: DULAGLUTIDE
     Indication: DIABETES MELLITUS
     Route: 058
     Dates: start: 20151221, end: 20151228
  2. METOPROLOL TARTRATE. [Concomitant]
     Active Substance: METOPROLOL TARTRATE
  3. LISINOPRIL/HCTZ [Concomitant]
     Active Substance: HYDROCHLOROTHIAZIDE\LISINOPRIL
  4. FLUTICASONE NS [Concomitant]
  5. GLIMEPIRIDE. [Concomitant]
     Active Substance: GLIMEPIRIDE

REACTIONS (5)
  - Insomnia [None]
  - Fluid intake reduced [None]
  - Panic attack [None]
  - Dysphagia [None]
  - Dyspnoea [None]

NARRATIVE: CASE EVENT DATE: 20160104
